FAERS Safety Report 12435354 (Version 1)
Quarter: 2016Q2

REPORT INFORMATION
  Report Type: Spontaneous
  Country: US (occurrence: US)
  Receive Date: 20160603
  Receipt Date: 20160603
  Transmission Date: 20160815
  Serious: No
  Sender: FDA-Public Use
  Company Number: US-ROCHE-1681490

PATIENT
  Age: 45 Year
  Sex: Female

DRUGS (16)
  1. FLEXERIL (CEFIXIME) [Concomitant]
  2. LEUCOVORIN CALCIUM. [Concomitant]
     Active Substance: LEUCOVORIN CALCIUM
  3. FOLIC ACID. [Concomitant]
     Active Substance: FOLIC ACID
  4. VITAMIN D3 [Concomitant]
     Active Substance: CHOLECALCIFEROL
  5. LIDODERM [Concomitant]
     Active Substance: LIDOCAINE
  6. NADOLOL. [Concomitant]
     Active Substance: NADOLOL
  7. SIMVASTATIN. [Concomitant]
     Active Substance: SIMVASTATIN
  8. REGLAN [Concomitant]
     Active Substance: METOCLOPRAMIDE HYDROCHLORIDE
  9. ZANTAC [Concomitant]
     Active Substance: RANITIDINE HYDROCHLORIDE
  10. ACTEMRA [Suspect]
     Active Substance: TOCILIZUMAB
     Indication: RHEUMATOID ARTHRITIS
     Route: 058
  11. BOTOX [Concomitant]
     Active Substance: ONABOTULINUMTOXINA
  12. OXAZEPAM. [Concomitant]
     Active Substance: OXAZEPAM
  13. MIRALAX [Concomitant]
     Active Substance: POLYETHYLENE GLYCOL 3350
  14. ZOMIG [Concomitant]
     Active Substance: ZOLMITRIPTAN
  15. CLARITIN [Concomitant]
     Active Substance: LORATADINE
  16. ZITHROMAX [Concomitant]
     Active Substance: AZITHROMYCIN DIHYDRATE

REACTIONS (3)
  - Rheumatoid arthritis [Unknown]
  - Dizziness [Unknown]
  - Hepatic enzyme increased [Unknown]
